FAERS Safety Report 4287445-8 (Version None)
Quarter: 2004Q1

REPORT INFORMATION
  Report Type: 
  Country: None (occurrence: None)
  Receive Date: 20040205
  Receipt Date: 20040123
  Transmission Date: 20041129
  Serious: No
  Sender: FDA-Public Use
  Company Number: B01200400157

PATIENT
  Age: 73 Year
  Sex: Female

DRUGS (7)
  1. CLOPIDOGREL BISULFATE [Suspect]
     Indication: ISCHAEMIA
     Dosage: 75 MG QD; TIME TO ONSET : 7 WEEKS 1 DAY
     Route: 048
     Dates: start: 20030723
  2. CLOPIDOGREL BISULFATE [Suspect]
     Indication: PROPHYLAXIS
     Dosage: 75 MG QD; TIME TO ONSET : 7 WEEKS 1 DAY
     Route: 048
     Dates: start: 20030723
  3. ACETYLSALICYLIC ACID SRT [Concomitant]
  4. LASIX [Concomitant]
  5. ENALAPRIL [Concomitant]
  6. ADALAT [Concomitant]
  7. ELTROXIN (LEVOTHYROXINE SODIUM) [Concomitant]

REACTIONS (3)
  - CONJUNCTIVITIS INFECTIVE [None]
  - HYPERTHYROIDISM [None]
  - PERIORBITAL OEDEMA [None]
